FAERS Safety Report 7936326-4 (Version None)
Quarter: 2011Q4

REPORT INFORMATION
  Report Type: 
  Country: None (occurrence: None)
  Receive Date: 20111123
  Receipt Date: 20111117
  Transmission Date: 20120403
  Serious: Yes (Death)
  Sender: FDA-Public Use
  Company Number: US-PFIZER INC-2011208105

PATIENT
  Sex: Female

DRUGS (6)
  1. CELEBREX [Suspect]
     Dosage: 200 MG, 2X/DAY
     Route: 048
     Dates: start: 20100101
  2. AMLODIPINE/VALSARTAN [Concomitant]
     Dosage: 10/60, EACH DAY
     Route: 048
  3. CARVEDILOL [Concomitant]
     Indication: BLOOD PRESSURE
     Dosage: 12.5 MG, 2X/DAY
     Route: 048
  4. SOLARAZE [Concomitant]
     Dosage: 3%
  5. CELEBREX [Suspect]
     Indication: OSTEOARTHRITIS
     Dosage: 200MG, EACH DAY
     Dates: start: 20080505
  6. OSCAL 500-D [Concomitant]
     Route: 048

REACTIONS (2)
  - HYPERTENSION [None]
  - DYSPNOEA [None]
